FAERS Safety Report 5565624-7 (Version None)
Quarter: 2007Q4

REPORT INFORMATION
  Report Type: 
  Country: None (occurrence: None)
  Receive Date: 20071218
  Receipt Date: 20071128
  Transmission Date: 20080405
  Serious: No
  Sender: FDA-Public Use
  Company Number: US-BOEHRINGER INGELHEIM PHARMACEUTICALS, INC.-2007-BP-25253BP

PATIENT
  Sex: Female

DRUGS (2)
  1. MIRAPEX [Suspect]
     Indication: PARKINSON'S DISEASE
     Route: 048
     Dates: start: 20070501
  2. SINEMET [Concomitant]
     Indication: PARKINSON'S DISEASE

REACTIONS (3)
  - GAIT DISTURBANCE [None]
  - MOBILITY DECREASED [None]
  - THERAPEUTIC RESPONSE DECREASED [None]
